FAERS Safety Report 25976298 (Version 1)
Quarter: 2025Q4

REPORT INFORMATION
  Report Type: Spontaneous
  Country: AU (occurrence: AU)
  Receive Date: 20251029
  Receipt Date: 20251029
  Transmission Date: 20260118
  Serious: Yes (Hospitalization, Other)
  Sender: CSL BEHRING
  Company Number: AU-BEH-2025222560

PATIENT
  Age: 59 Year
  Sex: Male

DRUGS (6)
  1. PRIVIGEN [Suspect]
     Active Substance: HUMAN IMMUNOGLOBULIN G
     Indication: Immune thrombocytopenia
     Dosage: UNK
     Route: 042
     Dates: start: 20250227
  2. PRIVIGEN [Suspect]
     Active Substance: HUMAN IMMUNOGLOBULIN G
     Dosage: 2G/KG
     Route: 042
     Dates: start: 20250228
  3. PRIVIGEN [Suspect]
     Active Substance: HUMAN IMMUNOGLOBULIN G
     Dosage: 2G/KG
     Route: 042
     Dates: start: 20250301
  4. Codral cold + flu [Concomitant]
  5. PREDNISONE [Concomitant]
     Active Substance: PREDNISONE
     Dosage: UNK
     Route: 048
     Dates: start: 20250227
  6. PREDNISONE [Concomitant]
     Active Substance: PREDNISONE
     Dosage: 100 MG

REACTIONS (19)
  - Headache [Recovered/Resolved]
  - Neck pain [Recovered/Resolved]
  - Headache [Recovered/Resolved with Sequelae]
  - Tinnitus [Recovered/Resolved]
  - Head discomfort [Recovered/Resolved with Sequelae]
  - Hypoaesthesia [Recovered/Resolved]
  - Facial pain [Recovered/Resolved]
  - Tongue paralysis [Recovered/Resolved]
  - Platelet count abnormal [Recovered/Resolved with Sequelae]
  - Headache [Recovered/Resolved with Sequelae]
  - Headache [Recovered/Resolved with Sequelae]
  - Tinnitus [Recovered/Resolved with Sequelae]
  - Condition aggravated [Recovered/Resolved with Sequelae]
  - Cerebrovascular accident [Recovered/Resolved with Sequelae]
  - Carotid artery dissection [Recovered/Resolved with Sequelae]
  - Carotid artery occlusion [Recovered/Resolved with Sequelae]
  - Arterial flow velocity decreased [Recovered/Resolved with Sequelae]
  - Thrombolysis [Unknown]
  - Computerised tomogram abnormal [Unknown]

NARRATIVE: CASE EVENT DATE: 20250201
